FAERS Safety Report 6106326-8 (Version None)
Quarter: 2009Q1

REPORT INFORMATION
  Report Type: 
  Country: None (occurrence: None)
  Receive Date: 20090306
  Receipt Date: 20090303
  Transmission Date: 20090719
  Serious: Yes (Life-Threatening, Other)
  Sender: FDA-Public Use
  Company Number: PHHY2008JP32912

PATIENT
  Sex: Female

DRUGS (4)
  1. SANDOSTATIN [Suspect]
     Indication: GASTRIC CANCER
     Dosage: 300 UG DAILY
     Route: 042
     Dates: start: 20081202, end: 20081219
  2. SIGMART [Concomitant]
     Indication: MYOCARDIAL INFARCTION
     Dosage: 48 MG, UNK
     Route: 042
     Dates: start: 20081211
  3. HEPARIN [Concomitant]
     Indication: MYOCARDIAL INFARCTION
     Dosage: UNK
     Route: 042
     Dates: start: 20081211
  4. FESIN [Concomitant]
     Indication: ANAEMIA
     Dosage: 2 DF, UNK
     Route: 042
     Dates: start: 20081210

REACTIONS (5)
  - ANAEMIA [None]
  - DEPRESSED LEVEL OF CONSCIOUSNESS [None]
  - HYPERHIDROSIS [None]
  - HYPOGLYCAEMIA [None]
  - MYOCARDIAL INFARCTION [None]
